FAERS Safety Report 8741488 (Version 2)
Quarter: 2012Q4

REPORT INFORMATION
  Report Type: 
  Country: US (occurrence: US)
  Receive Date: 20120824
  Receipt Date: 20120921
  Transmission Date: 20130627
  Serious: No
  Sender: FDA-Public Use
  Company Number: US-ASTRAZENECA-2012SE07274

PATIENT
  Age: 59 Year
  Sex: Female

DRUGS (6)
  1. SYMBICORT PMDI [Suspect]
     Dosage: UNKNOWN STRENGTH AND FREQUENCY
     Route: 055
  2. SPIRIVA [Concomitant]
  3. ZANTAC [Concomitant]
  4. ZOLOFT [Concomitant]
  5. ROPINIROLE [Concomitant]
  6. OXYGEN [Concomitant]
     Dosage: 2 LITER AT NIGTH OR WHEN SLEEPING

REACTIONS (3)
  - Dyspnoea [Unknown]
  - Adverse event [Unknown]
  - Drug dose omission [Unknown]
